FAERS Safety Report 6593888-X (Version None)
Quarter: 2010Q1

REPORT INFORMATION
  Report Type: 
  Country: None (occurrence: None)
  Receive Date: 20100222
  Receipt Date: 20100210
  Transmission Date: 20100710
  Serious: Yes (Other)
  Sender: FDA-Public Use
  Company Number: US-PFIZER INC-2010018864

PATIENT
  Sex: Female

DRUGS (1)
  1. CHANTIX [Suspect]
     Indication: SMOKING CESSATION THERAPY
     Dosage: 0.5 MG, 1X/DAY
     Route: 048
     Dates: start: 20090201, end: 20100206

REACTIONS (5)
  - ANXIETY [None]
  - DEPRESSION [None]
  - EYE SWELLING [None]
  - FACE OEDEMA [None]
  - MOOD SWINGS [None]
